FAERS Safety Report 24334332 (Version 1)
Quarter: 2024Q3

REPORT INFORMATION
  Report Type: Spontaneous
  Country: US (occurrence: US)
  Receive Date: 20240918
  Receipt Date: 20240918
  Transmission Date: 20241016
  Serious: Yes (Hospitalization, Other)
  Sender: BAXTER
  Company Number: US-BAXTER-2024BAX024609

PATIENT
  Age: 80 Year
  Sex: Female

DRUGS (1)
  1. DAPTOMYCIN [Suspect]
     Active Substance: DAPTOMYCIN
     Indication: Staphylococcal infection
     Route: 065

REACTIONS (5)
  - Pulmonary toxicity [Unknown]
  - Dyspnoea [Unknown]
  - Hypoxia [Unknown]
  - Cough [Unknown]
  - Acute respiratory distress syndrome [Unknown]
